FAERS Safety Report 22354248 (Version 2)
Quarter: 2023Q2

REPORT INFORMATION
  Report Type: Spontaneous
  Country: FR (occurrence: FR)
  Receive Date: 20230523
  Receipt Date: 20230619
  Transmission Date: 20230721
  Serious: Yes (Other)
  Sender: FDA-Public Use
  Company Number: FR-RECORDATI-2023002838

PATIENT

DRUGS (2)
  1. OSILODROSTAT [Suspect]
     Active Substance: OSILODROSTAT
     Indication: Cushing^s syndrome
     Dosage: 4 MILLIGRAM DAILY
  2. OSILODROSTAT [Suspect]
     Active Substance: OSILODROSTAT
     Dosage: LATE RE-INTRODUCTION (4 MILLIGRAM DAILY)

REACTIONS (3)
  - Sepsis [Unknown]
  - Pyelonephritis acute [Unknown]
  - Adrenocortical insufficiency acute [Unknown]
